FAERS Safety Report 8471194-6 (Version None)
Quarter: 2012Q2

REPORT INFORMATION
  Report Type: 
  Country: None (occurrence: None)
  Receive Date: 20120627
  Receipt Date: 20120619
  Transmission Date: 20120825
  Serious: Yes (Other)
  Sender: FDA-Public Use
  Company Number: US-PFIZER INC-2012089779

PATIENT
  Sex: Male
  Weight: 136 kg

DRUGS (4)
  1. DILANTIN [Suspect]
     Indication: CONVULSION
     Dosage: 50 MG, 2X/DAY
     Route: 048
     Dates: start: 20111001, end: 20110101
  2. DILANTIN [Suspect]
     Dosage: 450 MG (NINE TABLETS OF 50MG), 2X/DAY
     Route: 048
     Dates: start: 20110101
  3. LISINOPRIL [Concomitant]
     Indication: CARDIAC FAILURE CONGESTIVE
     Dosage: UNK
  4. KLOR-CON [Concomitant]
     Indication: CARDIAC FAILURE CONGESTIVE
     Dosage: UNK

REACTIONS (3)
  - DRUG INEFFECTIVE [None]
  - CONVULSION [None]
  - DRUG LEVEL DECREASED [None]
